FAERS Safety Report 7535772-0 (Version None)
Quarter: 2011Q2

REPORT INFORMATION
  Report Type: 
  Country: None (occurrence: None)
  Receive Date: 20110609
  Receipt Date: 20110413
  Transmission Date: 20111010
  Serious: No
  Sender: FDA-Public Use
  Company Number: US-KINGPHARMUSA00001-K201100445

PATIENT
  Age: 27 Year
  Sex: Female
  Weight: 54.422 kg

DRUGS (3)
  1. EMBEDA [Suspect]
     Indication: BACK PAIN
     Dosage: 50 MG, QD
     Route: 048
     Dates: start: 20110101, end: 20110401
  2. CYCLOBENZAPRINE [Concomitant]
     Dosage: UNK
  3. EMBEDA [Suspect]
     Dosage: UNK, DAILY
     Route: 048
     Dates: start: 20100101, end: 20100101

REACTIONS (6)
  - ANXIETY [None]
  - DISCOMFORT [None]
  - DRUG WITHDRAWAL SYNDROME [None]
  - COLD SWEAT [None]
  - CHILLS [None]
  - DECREASED APPETITE [None]
